FAERS Safety Report 5040842-5 (Version None)
Quarter: 2006Q3

REPORT INFORMATION
  Report Type: 
  Country: None (occurrence: None)
  Receive Date: 20060703
  Receipt Date: 20060627
  Transmission Date: 20061208
  Serious: Yes (Other)
  Sender: FDA-Public Use
  Company Number: US-BRISTOL-MYERS SQUIBB COMPANY-13426671

PATIENT
  Age: 50 Year
  Sex: Female
  Weight: 74 kg

DRUGS (6)
  1. CYTOXAN [Suspect]
     Indication: AUTOIMMUNE DISORDER
     Route: 048
  2. PROCRIT [Suspect]
     Indication: ANAEMIA
     Route: 058
     Dates: start: 20051001, end: 20051101
  3. ARANESP [Suspect]
     Indication: ANAEMIA
     Route: 058
     Dates: start: 20060301, end: 20060502
  4. OXYCODONE HCL [Concomitant]
  5. NEURONTIN [Concomitant]
  6. PREDNISONE [Concomitant]

REACTIONS (3)
  - APLASIA PURE RED CELL [None]
  - DRUG INEFFECTIVE [None]
  - DRUG SPECIFIC ANTIBODY ABSENT [None]
